FAERS Safety Report 7335989-4 (Version None)
Quarter: 2011Q1

REPORT INFORMATION
  Report Type: 
  Country: None (occurrence: None)
  Receive Date: 20110307
  Receipt Date: 20110223
  Transmission Date: 20110831
  Serious: Yes (Hospitalization, Other)
  Sender: FDA-Public Use
  Company Number: PHEH2009US10080

PATIENT
  Sex: Female
  Weight: 66.68 kg

DRUGS (3)
  1. EXJADE [Suspect]
     Indication: APLASTIC ANAEMIA
     Dosage: 1500 MG, UNK
     Route: 048
     Dates: start: 20060901
  2. CYCLOSPORINE [Suspect]
     Indication: APLASTIC ANAEMIA
     Dosage: DAILY
     Dates: start: 19990101
  3. EXJADE [Suspect]
     Indication: IRON OVERLOAD

REACTIONS (7)
  - ULCER [None]
  - BLOOD CREATININE INCREASED [None]
  - FULL BLOOD COUNT DECREASED [None]
  - OEDEMA PERIPHERAL [None]
  - ABDOMINAL PAIN UPPER [None]
  - NAUSEA [None]
  - GASTROINTESTINAL HAEMORRHAGE [None]
